FAERS Safety Report 5376307-0 (Version None)
Quarter: 2007Q3

REPORT INFORMATION
  Report Type: 
  Country: None (occurrence: None)
  Receive Date: 20070702
  Receipt Date: 20070619
  Transmission Date: 20080115
  Serious: Yes (Life-Threatening, Hospitalization)
  Sender: FDA-Public Use
  Company Number: CN-ROCHE-503715

PATIENT
  Age: 40 Year
  Sex: Male

DRUGS (2)
  1. PEGASYS [Suspect]
     Dosage: DOSAGE: ONE VIAL PER WEEK.
     Route: 058
     Dates: start: 20070101, end: 20070601
  2. CHINESE MEDICINE NOS [Concomitant]
     Dosage: REPORTED AS TCM (TRADITIONAL CHINESE MEDICINE).
     Route: 048

REACTIONS (4)
  - ASTHENIA [None]
  - LUNG INFECTION [None]
  - PYREXIA [None]
  - RESPIRATORY FAILURE [None]
